FAERS Safety Report 14233235 (Version 3)
Quarter: 2018Q1

REPORT INFORMATION
  Report Type: Spontaneous
  Country: DE (occurrence: DE)
  Receive Date: 20171129
  Receipt Date: 20180103
  Transmission Date: 20180508
  Serious: Yes (Hospitalization, Other)
  Sender: FDA-Public Use
  Company Number: DE-JNJFOC-20171122963

PATIENT
  Age: 44 Year
  Sex: Female

DRUGS (13)
  1. LITHIUM CARBONATE. [Suspect]
     Active Substance: LITHIUM CARBONATE
     Indication: BORDERLINE PERSONALITY DISORDER
     Dosage: 100-125 MG
     Route: 048
     Dates: start: 20161024, end: 20161031
  2. LITHIUM CARBONATE. [Suspect]
     Active Substance: LITHIUM CARBONATE
     Indication: BORDERLINE PERSONALITY DISORDER
     Dosage: 100-125 MG
     Route: 048
     Dates: start: 20161208, end: 20161211
  3. TRUXAL [Concomitant]
     Active Substance: CHLORPROTHIXENE
     Dosage: SINCE MONTHS
     Route: 048
  4. LITHIUM CARBONATE. [Suspect]
     Active Substance: LITHIUM CARBONATE
     Indication: BORDERLINE PERSONALITY DISORDER
     Dosage: 100-125 MG
     Route: 048
     Dates: start: 20161212, end: 20161214
  5. REMERGIL [Concomitant]
     Active Substance: MIRTAZAPINE
     Dosage: SINCE MONTHS
     Route: 048
  6. RISPERDAL [Suspect]
     Active Substance: RISPERIDONE
     Indication: BORDERLINE PERSONALITY DISORDER
     Route: 048
     Dates: end: 20161220
  7. LITHIUM CARBONATE. [Suspect]
     Active Substance: LITHIUM CARBONATE
     Indication: BORDERLINE PERSONALITY DISORDER
     Dosage: 100-125 MG
     Route: 048
     Dates: start: 20161101, end: 20161202
  8. LORAZEPAM. [Concomitant]
     Active Substance: LORAZEPAM
     Dosage: 0.5 TO 3 MG
     Route: 048
  9. LITHIUM CARBONATE. [Suspect]
     Active Substance: LITHIUM CARBONATE
     Indication: BORDERLINE PERSONALITY DISORDER
     Dosage: 100-125 MG
     Route: 048
     Dates: start: 20161012, end: 20161017
  10. LITHIUM CARBONATE. [Suspect]
     Active Substance: LITHIUM CARBONATE
     Indication: BORDERLINE PERSONALITY DISORDER
     Dosage: 100-125 MG
     Route: 048
     Dates: start: 20161205, end: 20161207
  11. LITHIUM CARBONATE. [Suspect]
     Active Substance: LITHIUM CARBONATE
     Indication: BORDERLINE PERSONALITY DISORDER
     Dosage: 100-125 MG
     Route: 048
     Dates: start: 20161018, end: 20161023
  12. LITHIUM CARBONATE. [Suspect]
     Active Substance: LITHIUM CARBONATE
     Indication: BORDERLINE PERSONALITY DISORDER
     Dosage: 100-125 MG
     Route: 048
     Dates: start: 20161203, end: 20161204
  13. ZOLOFT [Concomitant]
     Active Substance: SERTRALINE HYDROCHLORIDE
     Dosage: 100-125 MG
     Route: 048

REACTIONS (6)
  - Hospitalisation [Unknown]
  - Off label use [Unknown]
  - Angioedema [Recovered/Resolved]
  - Product use in unapproved indication [Unknown]
  - Pruritus [Recovered/Resolved]
  - Keratosis pilaris [Unknown]

NARRATIVE: CASE EVENT DATE: 20160904
